FAERS Safety Report 9105146 (Version 1)
Quarter: 2013Q1

REPORT INFORMATION
  Report Type: Spontaneous
  Country: US (occurrence: US)
  Receive Date: 20130220
  Receipt Date: 20130220
  Transmission Date: 20140127
  Serious: Yes (Other)
  Sender: FDA-Public Use
  Company Number: US-SANOFI-AVENTIS-2013SA013224

PATIENT
  Age: 72 Year
  Sex: Female

DRUGS (2)
  1. MULTAQ [Suspect]
     Indication: ATRIAL FIBRILLATION
     Route: 048
     Dates: start: 201210, end: 201302
  2. DILTIAZEM [Suspect]
     Route: 065

REACTIONS (5)
  - Atrial fibrillation [Not Recovered/Not Resolved]
  - Joint swelling [Unknown]
  - Burning sensation [Unknown]
  - Pain in extremity [Unknown]
  - Rash [Unknown]
